FAERS Safety Report 8235668-5 (Version None)
Quarter: 2012Q1

REPORT INFORMATION
  Report Type: 
  Country: None (occurrence: None)
  Receive Date: 20120323
  Receipt Date: 20120320
  Transmission Date: 20120608
  Serious: Yes (Other)
  Sender: FDA-Public Use
  Company Number: ADR-2012-00385

PATIENT
  Sex: Male

DRUGS (2)
  1. BACLOFEN [Suspect]
     Indication: CEREBRAL PALSY
     Dosage: 134.8 MCG/DAY  SIMPLE CONTINUOUS
  2. BACLOFEN [Suspect]
     Indication: MUSCLE SPASTICITY
     Dosage: 134.8 MCG/DAY  SIMPLE CONTINUOUS

REACTIONS (5)
  - ERYTHEMA [None]
  - IMPLANT SITE EFFUSION [None]
  - INCISION SITE COMPLICATION [None]
  - DEVICE BREAKAGE [None]
  - HYPERSENSITIVITY [None]
